FAERS Safety Report 8041536-4 (Version None)
Quarter: 2012Q1

REPORT INFORMATION
  Report Type: 
  Country: None (occurrence: None)
  Receive Date: 20120109
  Receipt Date: 20120104
  Transmission Date: 20120608
  Serious: Yes (Hospitalization, Other)
  Sender: FDA-Public Use
  Company Number: 2011SP035868

PATIENT
  Age: 53 Year
  Sex: Female
  Weight: 72.5755 kg

DRUGS (2)
  1. NUVARING [Suspect]
     Indication: MENORRHAGIA
     Dates: start: 20081201, end: 20090201
  2. NUVARING [Suspect]
     Indication: MENORRHAGIA
     Dates: start: 20090501, end: 20090801

REACTIONS (19)
  - PULMONARY EMBOLISM [None]
  - FIBROADENOMA OF BREAST [None]
  - ANAEMIA [None]
  - PLEURAL EFFUSION [None]
  - LEIOMYOMA [None]
  - DIVERTICULUM INTESTINAL [None]
  - PALPITATIONS [None]
  - DERMATITIS ATOPIC [None]
  - PERIPHERAL NERVE LESION [None]
  - HAEMATURIA [None]
  - PNEUMONIA [None]
  - MIGRAINE [None]
  - BACK PAIN [None]
  - DEEP VEIN THROMBOSIS [None]
  - UTERINE LEIOMYOMA [None]
  - HEART RATE IRREGULAR [None]
  - DYSPHAGIA [None]
  - VARICOSE VEIN [None]
  - ASTHENIA [None]
